FAERS Safety Report 8880905 (Version 1)
Quarter: 2012Q4

REPORT INFORMATION
  Report Type: 
  Country: GB (occurrence: GB)
  Receive Date: 20121101
  Receipt Date: 20121101
  Transmission Date: 20130627
  Serious: Yes (Other)
  Sender: FDA-Public Use
  Company Number: GB-AMGEN-GBRSP2012045429

PATIENT
  Age: 0 Year
  Sex: Female

DRUGS (7)
  1. NPLATE [Suspect]
     Indication: IDIOPATHIC THROMBOCYTOPENIC PURPURA
     Dosage: 650 mug, qwk
     Route: 064
     Dates: start: 20100909, end: 20111102
  2. NPLATE [Suspect]
     Indication: IDIOPATHIC THROMBOCYTOPENIC PURPURA
     Dosage: 650 mug, qwk
     Route: 064
     Dates: start: 20100909, end: 20111102
  3. NPLATE [Suspect]
     Dosage: 300 UNK, qwk
     Route: 063
     Dates: start: 20120612, end: 20120712
  4. NPLATE [Suspect]
     Dosage: 300 UNK, qwk
     Route: 063
     Dates: start: 20120612, end: 20120712
  5. AZATHIOPRINE [Concomitant]
     Indication: IDIOPATHIC THROMBOCYTOPENIC PURPURA
     Dosage: 200 mg, qd
     Route: 064
     Dates: start: 20111110, end: 20120607
  6. DEXAMETHASONE [Concomitant]
     Indication: IDIOPATHIC THROMBOCYTOPENIC PURPURA
     Dosage: 20 mg, qd
     Route: 064
     Dates: start: 20120531, end: 20120605
  7. IV-GLOBULIN [Concomitant]
     Indication: IDIOPATHIC THROMBOCYTOPENIC PURPURA
     Dosage: 70 g, qwk
     Route: 064
     Dates: start: 20111117, end: 20120531

REACTIONS (2)
  - Platelet count decreased [Unknown]
  - Breast feeding [Recovered/Resolved]
